FAERS Safety Report 5237256-1 (Version None)
Quarter: 2007Q1

REPORT INFORMATION
  Report Type: 
  Country: None (occurrence: None)
  Receive Date: 20070213
  Receipt Date: 20070201
  Transmission Date: 20070707
  Serious: Yes (Other)
  Sender: FDA-Public Use
  Company Number: US-ROCHE-480885

PATIENT
  Sex: Male

DRUGS (2)
  1. ACCUTANE [Suspect]
     Indication: DRUG USE FOR UNKNOWN INDICATION
     Dosage: INITIAL THERAPY
     Route: 065
  2. ACCUTANE [Suspect]
     Dosage: SECOND (RECHALLENGE) THERAPY
     Route: 065

REACTIONS (2)
  - BIPOLAR DISORDER [None]
  - MANIA [None]
